FAERS Safety Report 10860768 (Version 1)
Quarter: 2015Q1

REPORT INFORMATION
  Report Type: Spontaneous
  Country: PH (occurrence: PH)
  Receive Date: 20150224
  Receipt Date: 20150224
  Transmission Date: 20150721
  Serious: Yes (Death)
  Sender: FDA-Public Use
  Company Number: PH-009507513-1502PHL009546

PATIENT
  Age: 67 Year
  Sex: Male

DRUGS (2)
  1. JANUMET [Suspect]
     Active Substance: METFORMIN HYDROCHLORIDE\SITAGLIPTIN PHOSPHATE
     Indication: HYPERTENSION
     Dosage: ONE TABLET, ONCE A DAY
     Route: 048
  2. INSULIN [Concomitant]
     Active Substance: INSULIN NOS

REACTIONS (3)
  - Drug administration error [Unknown]
  - Inappropriate schedule of drug administration [Unknown]
  - Renal disorder [Fatal]

NARRATIVE: CASE EVENT DATE: 20141101
